FAERS Safety Report 8001829-3 (Version None)
Quarter: 2011Q4

REPORT INFORMATION
  Report Type: 
  Country: None (occurrence: None)
  Receive Date: 20111222
  Receipt Date: 20111214
  Transmission Date: 20120403
  Serious: Yes (Other)
  Sender: FDA-Public Use
  Company Number: US-ROCHE-803002

PATIENT
  Sex: Female
  Weight: 47.67 kg

DRUGS (1)
  1. ACCUTANE [Suspect]
     Indication: ACNE
     Dosage: 40 MG IN AM AND 80 MG AT PM
     Route: 065
     Dates: start: 19900301, end: 19900701

REACTIONS (8)
  - HAEMORRHOIDS [None]
  - EMOTIONAL DISTRESS [None]
  - LARYNGITIS [None]
  - INFLAMMATORY BOWEL DISEASE [None]
  - COLITIS ULCERATIVE [None]
  - ALANINE AMINOTRANSFERASE INCREASED [None]
  - URINARY TRACT INFECTION [None]
  - ARTHRALGIA [None]
